FAERS Safety Report 4892549-2 (Version None)
Quarter: 2006Q1

REPORT INFORMATION
  Report Type: 
  Country: None (occurrence: None)
  Receive Date: 20060124
  Receipt Date: 20060110
  Transmission Date: 20060701
  Serious: Yes (Other)
  Sender: FDA-Public Use
  Company Number: 8012361

PATIENT
  Age: 43 Year
  Sex: Male
  Weight: 90 kg

DRUGS (3)
  1. KEPPRA [Suspect]
     Indication: MIGRAINE
     Dosage: 500 MG 3/D PO
     Route: 048
     Dates: start: 20050426, end: 20050609
  2. METAMUCIL [Concomitant]
  3. SUMATRIPTAN SUCCINATE [Concomitant]

REACTIONS (10)
  - CONDITION AGGRAVATED [None]
  - CONJUNCTIVITIS [None]
  - COORDINATION ABNORMAL [None]
  - DIZZINESS [None]
  - EYE INFLAMMATION [None]
  - EYE IRRITATION [None]
  - MIGRAINE [None]
  - OCULAR DISCOMFORT [None]
  - PHOTOPHOBIA [None]
  - VISUAL DISTURBANCE [None]
